FAERS Safety Report 24717227 (Version 1)
Quarter: 2024Q4

REPORT INFORMATION
  Report Type: Spontaneous
  Country: US (occurrence: US)
  Receive Date: 20241210
  Receipt Date: 20241210
  Transmission Date: 20250114
  Serious: Yes (Hospitalization)
  Sender: SANOFI AVENTIS
  Company Number: US-SA-2024SA317779

PATIENT
  Age: 61 Year
  Sex: Male

DRUGS (7)
  1. ALPROLIX [Suspect]
     Active Substance: EFTRENONACOG ALFA
     Indication: Factor IX deficiency
     Dosage: UNK
     Route: 042
     Dates: start: 202409, end: 2024
  2. ALPROLIX [Suspect]
     Active Substance: EFTRENONACOG ALFA
     Indication: Factor IX deficiency
     Dosage: UNK
     Route: 042
     Dates: start: 202409, end: 2024
  3. ALPROLIX [Suspect]
     Active Substance: EFTRENONACOG ALFA
     Dosage: INFUSE 10000 UNITS (9000-11000) SLOW IV PUSH PRE-OP
     Route: 042
     Dates: start: 20241028, end: 20241028
  4. ALPROLIX [Suspect]
     Active Substance: EFTRENONACOG ALFA
     Dosage: INFUSE 10000 UNITS (9000-11000) SLOW IV PUSH PRE-OP
     Route: 042
     Dates: start: 20241028, end: 20241028
  5. ALPROLIX [Suspect]
     Active Substance: EFTRENONACOG ALFA
     Dosage: INFUSE 5000 UNITS (4500-5500) IV POST-OP
     Route: 042
     Dates: start: 20241029
  6. ALPROLIX [Suspect]
     Active Substance: EFTRENONACOG ALFA
     Dosage: INFUSE 5000 UNITS (4500-5500) IV POST-OP
     Route: 042
     Dates: start: 20241029
  7. SODIUM CHLORIDE [Concomitant]
     Active Substance: SODIUM CHLORIDE
     Dosage: 10 ML

REACTIONS (6)
  - Joint swelling [Unknown]
  - Arthritis infective [Recovering/Resolving]
  - Haemorrhage [Recovering/Resolving]
  - Rotator cuff syndrome [Unknown]
  - Arthralgia [Unknown]
  - Fall [Unknown]

NARRATIVE: CASE EVENT DATE: 20240101
